FAERS Safety Report 5344883-X (Version None)
Quarter: 2007Q2

REPORT INFORMATION
  Report Type: 
  Country: None (occurrence: None)
  Receive Date: 20070416
  Receipt Date: 20070118
  Transmission Date: 20071010
  Serious: No
  Sender: FDA-Public Use
  Company Number: 2007SP000215

PATIENT
  Age: 67 Year
  Sex: Female
  Weight: 68.0396 kg

DRUGS (8)
  1. LUNESTA [Suspect]
     Indication: INSOMNIA
     Dosage: SEE IMAGE
     Route: 048
     Dates: start: 20070101, end: 20070101
  2. LUNESTA [Suspect]
     Indication: INSOMNIA
     Dosage: SEE IMAGE
     Route: 048
     Dates: start: 20070101, end: 20070117
  3. ATIVAN [Concomitant]
  4. KLONOPIN [Concomitant]
  5. ENALAPRIL [Concomitant]
  6. METOPROLOL SUCCINATE [Concomitant]
  7. CRESTOR [Concomitant]
  8. ESTROGENS CONJUGATED [Concomitant]

REACTIONS (1)
  - INSOMNIA [None]
